FAERS Safety Report 5056270-2 (Version None)
Quarter: 2006Q3

REPORT INFORMATION
  Report Type: 
  Country: None (occurrence: None)
  Receive Date: 20060717
  Receipt Date: 20060704
  Transmission Date: 20061208
  Serious: Yes (Hospitalization)
  Sender: FDA-Public Use
  Company Number: 2006077413

PATIENT
  Age: 61 Year
  Sex: Female
  Weight: 91 kg

DRUGS (1)
  1. AROMASIN [Suspect]
     Indication: BREAST CANCER FEMALE
     Dosage: 25 MG (25 MG, 1 IN 1 D), ORAL
     Route: 048
     Dates: start: 20031001

REACTIONS (7)
  - FALL [None]
  - HAEMATOMA [None]
  - HUMERUS FRACTURE [None]
  - OSTEOPOROSIS [None]
  - PAIN [None]
  - POST PROCEDURAL COMPLICATION [None]
  - SWELLING [None]
